FAERS Safety Report 6114203-1 (Version None)
Quarter: 2009Q1

REPORT INFORMATION
  Report Type: 
  Country: None (occurrence: None)
  Receive Date: 20090312
  Receipt Date: 20080702
  Transmission Date: 20090719
  Serious: No
  Sender: FDA-Public Use
  Company Number: US-ABBOTT-08P-163-0461376-00

PATIENT
  Sex: Male
  Weight: 64.014 kg

DRUGS (7)
  1. DEPAKOTE [Suspect]
     Indication: BIPOLAR DISORDER
     Dosage: DAILY
     Route: 048
     Dates: start: 20080612, end: 20080702
  2. DEPAKOTE ER [Suspect]
     Indication: BIPOLAR DISORDER
     Route: 048
     Dates: start: 20071201, end: 20080612
  3. DEPAKOTE ER [Suspect]
     Dates: start: 20080702
  4. TRAZODONE HCL [Concomitant]
     Indication: SLEEP DISORDER THERAPY
     Dosage: EVERY NIGHT
     Route: 048
     Dates: start: 20071201
  5. SERTRALINE [Concomitant]
     Indication: DEPRESSION
     Dosage: EVERY DAY
     Route: 048
     Dates: start: 20080201
  6. ARIPIPRAZOLE [Concomitant]
     Indication: PSYCHOMOTOR HYPERACTIVITY
     Dosage: EVERY DAY
     Route: 048
     Dates: start: 20080702
  7. VALPROATE SODIUM [Concomitant]
     Indication: BIPOLAR DISORDER
     Dosage: EVERY DAY
     Route: 048
     Dates: start: 20080702

REACTIONS (3)
  - CHEST PAIN [None]
  - FEELING ABNORMAL [None]
  - INSOMNIA [None]
